FAERS Safety Report 12644444 (Version 3)
Quarter: 2016Q4

REPORT INFORMATION
  Report Type: Spontaneous
  Country: US (occurrence: US)
  Receive Date: 20160811
  Receipt Date: 20161025
  Transmission Date: 20170207
  Serious: Yes (Hospitalization, Other)
  Sender: FDA-Public Use
  Company Number: US-PFIZER INC-2016382747

PATIENT
  Age: 55 Year
  Sex: Female
  Weight: 86.1 kg

DRUGS (52)
  1. DELTASONE [Concomitant]
     Active Substance: PREDNISONE
     Indication: SYSTEMIC LUPUS ERYTHEMATOSUS
     Dosage: UNK, 1X/DAY (40 OR 60 MG)
     Route: 048
     Dates: start: 2000
  2. ZANAFLEX [Concomitant]
     Active Substance: TIZANIDINE HYDROCHLORIDE
     Indication: MIGRAINE
     Dosage: 2 MG, 2X/DAY
  3. MAGNESIUM OXIDE. [Concomitant]
     Active Substance: MAGNESIUM OXIDE
     Indication: BLOOD MAGNESIUM DECREASED
     Dosage: 400 MG, 2X/DAY
  4. ZYRTEC [Concomitant]
     Active Substance: CETIRIZINE HYDROCHLORIDE
     Indication: HYPERSENSITIVITY
     Dosage: 10 MG, 1X/DAY
     Route: 048
  5. FLEXERIL [Concomitant]
     Active Substance: CYCLOBENZAPRINE HYDROCHLORIDE
     Dosage: 10 MG, 3X/DAY AS NEEDED
     Route: 048
     Dates: start: 2010
  6. CARDIZEM LA [Concomitant]
     Active Substance: DILTIAZEM HYDROCHLORIDE
     Dosage: 240 MG, 1X/DAY AS NEEDED
     Route: 048
  7. LASIX [Concomitant]
     Active Substance: FUROSEMIDE
     Dosage: 40 MG, 2X/DAY (TAKE 2 TABLETS BY MOUTH TWICE DAILY)
     Route: 048
  8. GLUCOSE [Concomitant]
     Active Substance: DEXTROSE
     Indication: BLOOD GLUCOSE DECREASED
     Dosage: UNK, AS NEEDED (TAKE 3 TABLETS BY MOUTH, AS NEEDED FOR LOW SUGAR)
     Route: 048
  9. MAGNESIUM [Concomitant]
     Active Substance: MAGNESIUM
     Dosage: 400 MG, 2X/DAY
     Route: 048
  10. REVATIO [Suspect]
     Active Substance: SILDENAFIL CITRATE
     Indication: PULMONARY HYPERTENSION
     Dosage: 20 MG, 3X/DAY
     Route: 048
     Dates: start: 200510
  11. PREVACID [Concomitant]
     Active Substance: LANSOPRAZOLE
     Indication: GASTROOESOPHAGEAL REFLUX DISEASE
     Dosage: 30 MG, 2X/DAY
     Route: 048
  12. ZANTAC [Concomitant]
     Active Substance: RANITIDINE HYDROCHLORIDE
     Indication: GASTROOESOPHAGEAL REFLUX DISEASE
     Dosage: 150 MG, 1X/DAY, FOR ONE WEEK
     Route: 048
  13. ZANAFLEX [Concomitant]
     Active Substance: TIZANIDINE HYDROCHLORIDE
     Dosage: 8 MG, 1 TABLET IN AM, 1 TAB IN THE AFTERNOON AND 2 TABS AT BEDTIME
  14. FIORICET [Concomitant]
     Active Substance: ACETAMINOPHEN\BUTALBITAL\CAFFEINE
     Dosage: UNK(ACETAMINOPHEN 325 MG CAFFEINE 40 MG BUTALBITAL 50 MG 1 TAB EVERY 4 HOURS AS NEEDED)
  15. AMOXIL [Concomitant]
     Active Substance: AMOXICILLIN
     Indication: ORTHODONTIC PROCEDURE
     Dosage: 2000 MG, UNK (TAKE 4 CAPSULES BY MOUTH 1 HR PRIOR TO DENTAL APPOINTMENT)
     Route: 048
  16. IMURAN [Concomitant]
     Active Substance: AZATHIOPRINE
     Indication: SYSTEMIC LUPUS ERYTHEMATOSUS
     Dosage: 150 MG, UNK (TAKE 3 TABLET BY MOUTH ONCE DAILY)
     Route: 048
  17. PLAQUENIL [Concomitant]
     Active Substance: HYDROXYCHLOROQUINE SULFATE
     Indication: SYSTEMIC LUPUS ERYTHEMATOSUS
     Dosage: 400 MG, DAILY (TAKE 2 TABLETS BY MOUTH ONCE DAILY)
     Route: 048
  18. K-LOR [Concomitant]
     Active Substance: POTASSIUM CHLORIDE
     Dosage: 20 MEQ, 2X/DAY
     Route: 048
  19. COMPAZINE [Concomitant]
     Active Substance: PROCHLORPERAZINE MALEATE
     Indication: NAUSEA
     Dosage: 10 MG, AS NEEDED (TAKE 1 TABLET BY MOUTH EVERY 6 HOURS AS NEEDED)
     Route: 048
  20. MIRALAX [Concomitant]
     Active Substance: POLYETHYLENE GLYCOL 3350
     Dosage: 17 G, AS NEEDED (TAKE 17 G BY MOUTH TWICE DAILY AS NEEDED)
     Route: 048
  21. ZANTAC [Concomitant]
     Active Substance: RANITIDINE HYDROCHLORIDE
     Dosage: 150 MG, AS NEEDED (TAKE 150 MG BY MOUTH AS NEEDED)
     Route: 048
  22. CALTRATE +D [Concomitant]
     Indication: OSTEOPENIA
     Dosage: 1000 IU, 2X/DAY
  23. PROVENTIL HFA [Concomitant]
     Active Substance: ALBUTEROL SULFATE
     Indication: DYSPNOEA
     Dosage: 90 UG, UNK(INHALE 2 PUFF# INSTRUCTED EVERY 4 HOURS AS NEEDED TO B)
  24. ALTACE [Concomitant]
     Active Substance: RAMIPRIL
     Indication: HYPERTENSION
     Dosage: 5 MG, 1X/DAY
     Route: 048
  25. KLOR-CON [Concomitant]
     Active Substance: POTASSIUM CHLORIDE
     Dosage: 20 MEQ, 1 PACKET IN THE MORNING AND 1 IN PM WITH LASIX
     Route: 048
  26. BETAPACE [Concomitant]
     Active Substance: SOTALOL HYDROCHLORIDE
     Indication: ARRHYTHMIA
     Dosage: 120 MG, 2X/DAY
  27. NORTRIPTYLINE HCL [Concomitant]
     Active Substance: NORTRIPTYLINE HYDROCHLORIDE
     Indication: MIGRAINE
     Dosage: 75 MG, 2X/DAY, AT BEDTIME
     Route: 048
     Dates: start: 2010
  28. POTASSIUM CHLORIDE. [Concomitant]
     Active Substance: POTASSIUM CHLORIDE
     Indication: BLOOD CALCIUM DECREASED
     Dosage: 20 MG, 2X/DAY
  29. CENTRUM [Concomitant]
     Active Substance: VITAMINS
     Indication: ANAEMIA
     Dosage: UNK, 1X/DAY
     Route: 048
  30. ACIDOPHILUS [Concomitant]
     Active Substance: LACTOBACILLUS ACIDOPHILUS
     Indication: ANTIBIOTIC THERAPY
     Dosage: 300 MG, 1X/DAY
  31. NASACORT [Concomitant]
     Active Substance: TRIAMCINOLONE ACETONIDE
     Indication: HYPERSENSITIVITY
     Dosage: 1X/DAY
  32. NASACORT [Concomitant]
     Active Substance: TRIAMCINOLONE ACETONIDE
     Dosage: UNK, 2X/DAY
     Route: 045
  33. CALCIUM + VITAMIN D3 [Concomitant]
     Active Substance: CALCIUM CARBONATE\CHOLECALCIFEROL
     Dosage: 1 DF, UNK (1,200 MG CALCIUM-1000 UNIT CHEW; DOSAGE: TAKE 1 TABLET BY MOUTH TWICE DAILY)
     Route: 048
  34. CATAPRES [Concomitant]
     Active Substance: CLONIDINE HYDROCHLORIDE
     Indication: MIGRAINE
     Dosage: 0.1 MG, UNK (0.2 MG TABLET; DOSAGE: TAKE 0.5 TABLETS BY MOUTH DAILY AT BEDTIME)
     Route: 048
     Dates: start: 2010
  35. POLYETHYLENE GLYCOL [Concomitant]
     Active Substance: POLYETHYLENE GLYCOLS
     Dosage: 17 G, 2X/DAY AS NEEDED
     Route: 048
  36. REVATIO [Suspect]
     Active Substance: SILDENAFIL CITRATE
     Indication: CHRONIC OBSTRUCTIVE PULMONARY DISEASE
  37. DELTASONE [Concomitant]
     Active Substance: PREDNISONE
     Indication: ATRIAL FIBRILLATION
  38. VOLTAREN [Concomitant]
     Active Substance: DICLOFENAC SODIUM
     Dosage: 2 G, 3X/DAY AS NEEDED
     Route: 061
  39. PROBIOTIC [Concomitant]
     Active Substance: PROBIOTICS NOS
  40. DELTASONE [Concomitant]
     Active Substance: PREDNISONE
     Indication: ANTIPHOSPHOLIPID SYNDROME
  41. NEURONTIN [Concomitant]
     Active Substance: GABAPENTIN
     Indication: MIGRAINE
     Dosage: 800 MG, 4X/DAY
     Route: 048
     Dates: start: 2001
  42. LANTUS [Concomitant]
     Active Substance: INSULIN GLARGINE
     Dosage: 100 UNIT/ML (3 ML) INPN;8 UNITS SUBCUTANEOUSLY DAILY AT BEDTIME)
     Route: 058
     Dates: start: 200511
  43. AMMONIUM LACTATE W/UREA [Concomitant]
     Dosage: 10-20% AREA TO BOTTOM OF FOOT DAILY
  44. DELTASONE [Concomitant]
     Active Substance: PREDNISONE
     Indication: THROMBOSIS
     Dosage: 5 MG, 1X/DAY (ONCE A DAY)
     Dates: start: 200510
  45. FIORICET [Concomitant]
     Active Substance: ACETAMINOPHEN\BUTALBITAL\CAFFEINE
     Indication: MIGRAINE
     Dosage: 50/325/40 MG, 1 DF EVERY 4 HRS
     Route: 048
  46. FIORICET [Concomitant]
     Active Substance: ACETAMINOPHEN\BUTALBITAL\CAFFEINE
     Indication: HEADACHE
     Dosage: UNK (BUTALBITAL 50 MG, CAFFEINE 325 MG, PARACETAMOL 40 MG)
     Dates: start: 1995
  47. ZETIA [Concomitant]
     Active Substance: EZETIMIBE
     Indication: BLOOD CHOLESTEROL INCREASED
     Dosage: 10 MG, 1X/DAY, AT BED TIME
     Route: 048
  48. ALBUTEROL HFA [Concomitant]
     Active Substance: ALBUTEROL SULFATE
     Indication: DYSPNOEA
     Dosage: 90 UG, AS NEEDED (INHALE 2 PUFF# INSTRUCTED EVERY 4 HOURS AS NEEDED TO BOTTOM OF FOOT DAILY)
     Route: 055
  49. HUMALOG [Concomitant]
     Active Substance: INSULIN LISPRO
     Dosage: 100 IU/ML, 8 UNITS BEFORE BREAKFAST; 11 BEFORE LUNCH, 12 BEFORE DINNNER
     Dates: start: 200511
  50. SIMETHICONE (DIMETHICONE) [Concomitant]
     Active Substance: DIMETHICONE
     Indication: FLATULENCE
     Dosage: 160 MG, 2X/DAY
  51. POLYMOX [Concomitant]
     Active Substance: AMOXICILLIN
     Indication: ORTHODONTIC PROCEDURE
     Dosage: 2000 MG, UNK (TAKE 4 CAPSULES BY MOUTH 1 HR PRIOR TO DENTAL APPOINTMENT)
     Route: 048
  52. VITAMIN D3 [Concomitant]
     Active Substance: CHOLECALCIFEROL
     Dosage: 1000 IU, 2X/DAY
     Route: 048

REACTIONS (3)
  - Oesophageal stenosis [Recovering/Resolving]
  - Drug effect incomplete [Unknown]
  - Condition aggravated [Recovering/Resolving]

NARRATIVE: CASE EVENT DATE: 201504
